FAERS Safety Report 14816535 (Version 1)
Quarter: 2018Q2

REPORT INFORMATION
  Report Type: Report from Study
  Country: CA (occurrence: CA)
  Receive Date: 20180426
  Receipt Date: 20180426
  Transmission Date: 20180711
  Serious: Yes (Other)
  Sender: FDA-Public Use
  Company Number: CA-BRISTOL-MYERS SQUIBB COMPANY-BMS-2017-081001

PATIENT
  Sex: Female

DRUGS (1)
  1. ABATACEPT [Suspect]
     Active Substance: ABATACEPT
     Indication: RHEUMATOID ARTHRITIS
     Dosage: 750 MG, Q4WK
     Route: 042
     Dates: start: 20170525

REACTIONS (19)
  - Anxiety [Unknown]
  - Tachycardia [Unknown]
  - Joint dislocation [Unknown]
  - Restlessness [Unknown]
  - Arthritis [Recovering/Resolving]
  - Memory impairment [Recovering/Resolving]
  - Pain in extremity [Recovering/Resolving]
  - Alopecia [Unknown]
  - Insomnia [Recovering/Resolving]
  - Hypertension [Unknown]
  - Fatigue [Unknown]
  - Arthralgia [Unknown]
  - Drug dose omission [Unknown]
  - Inflammation [Recovering/Resolving]
  - Pain [Recovering/Resolving]
  - Fall [Recovering/Resolving]
  - Wrist fracture [Unknown]
  - Depression [Unknown]
  - Eating disorder [Recovering/Resolving]
